FAERS Safety Report 12696420 (Version 2)
Quarter: 2016Q4

REPORT INFORMATION
  Report Type: Spontaneous
  Country: BR (occurrence: BR)
  Receive Date: 20160830
  Receipt Date: 20161030
  Transmission Date: 20170207
  Serious: Yes (Other)
  Sender: FDA-Public Use
  Company Number: BR-ASTRAZENECA-2016SE90585

PATIENT
  Age: 41 Year
  Sex: Female
  Weight: 72 kg

DRUGS (3)
  1. CLONAZEPAM. [Concomitant]
     Active Substance: CLONAZEPAM
     Indication: INSOMNIA
  2. ZOLADEX LA [Suspect]
     Active Substance: GOSERELIN ACETATE
     Indication: ENDOMETRIOSIS
     Dosage: TWO APPLICATIONS EACH SIX MONTHS
     Route: 058
     Dates: start: 20151005, end: 201604
  3. OMEPRAZOLE. [Suspect]
     Active Substance: OMEPRAZOLE
     Indication: GASTRITIS
     Route: 048
     Dates: start: 2008

REACTIONS (11)
  - Weight increased [Recovering/Resolving]
  - Headache [Recovered/Resolved]
  - Endometriosis [Unknown]
  - Vulvovaginal dryness [Recovered/Resolved]
  - Insomnia [Recovered/Resolved]
  - Nausea [Recovered/Resolved]
  - Depression [Recovered/Resolved]
  - Loss of libido [Recovered/Resolved]
  - Hot flush [Not Recovered/Not Resolved]
  - Abdominal pain [Recovered/Resolved]
  - Off label use [Recovered/Resolved]

NARRATIVE: CASE EVENT DATE: 2015
